FAERS Safety Report 6164853-1 (Version None)
Quarter: 2009Q2

REPORT INFORMATION
  Report Type: 
  Country: None (occurrence: None)
  Receive Date: 20090423
  Receipt Date: 20090413
  Transmission Date: 20091009
  Serious: Yes (Other)
  Sender: FDA-Public Use
  Company Number: US-AMGEN-TCS342772

PATIENT
  Sex: Female

DRUGS (1)
  1. ENBREL [Suspect]
     Indication: RHEUMATOID ARTHRITIS
     Route: 058
     Dates: start: 20020601

REACTIONS (5)
  - BLOOD DISORDER [None]
  - CONTUSION [None]
  - MYOCARDITIS [None]
  - SKIN LACERATION [None]
  - SUPRAVENTRICULAR TACHYCARDIA [None]
